FAERS Safety Report 5008328-1 (Version None)
Quarter: 2006Q2

REPORT INFORMATION
  Report Type: 
  Country: None (occurrence: None)
  Receive Date: 20060523
  Receipt Date: 20051024
  Transmission Date: 20061013
  Serious: Yes (Death)
  Sender: FDA-Public Use
  Company Number: JP-BRISTOL-MYERS SQUIBB COMPANY-13156286

PATIENT
  Age: 73 Year
  Sex: Male

DRUGS (6)
  1. TAXOL [Suspect]
     Indication: LUNG NEOPLASM MALIGNANT
     Route: 042
     Dates: start: 20050609, end: 20050818
  2. PARAPLATIN [Suspect]
     Indication: LUNG NEOPLASM MALIGNANT
     Route: 042
     Dates: start: 20050609, end: 20050804
  3. ISOSORBIDE MONONITRATE [Concomitant]
     Route: 048
  4. AMLODIPINE BESYLATE [Concomitant]
     Route: 048
  5. RADIOTHERAPY [Concomitant]
     Dates: start: 20050607, end: 20050719
  6. MOSAPRIDE [Concomitant]
     Route: 048
     Dates: start: 20050603, end: 20051008

REACTIONS (1)
  - INTERSTITIAL LUNG DISEASE [None]
